FAERS Safety Report 6173657-5 (Version None)
Quarter: 2009Q2

REPORT INFORMATION
  Report Type: 
  Country: None (occurrence: None)
  Receive Date: 20090429
  Receipt Date: 20090429
  Transmission Date: 20091009
  Serious: Yes (Other)
  Sender: FDA-Public Use
  Company Number: None

PATIENT
  Sex: Female
  Weight: 50.8029 kg

DRUGS (1)
  1. ACTONEL [Suspect]
     Dosage: 150 MG ONCE A MONTH BY MOUTH
     Route: 048
     Dates: start: 20081019, end: 20081214

REACTIONS (1)
  - PAIN IN EXTREMITY [None]
